FAERS Safety Report 9660858 (Version 2)
Quarter: 2013Q4

REPORT INFORMATION
  Report Type: Spontaneous
  Country: US (occurrence: US)
  Receive Date: 20131031
  Receipt Date: 20131114
  Transmission Date: 20140711
  Serious: No
  Sender: FDA-Public Use
  Company Number: US-009507513-1310USA014071

PATIENT
  Age: 88 Year
  Sex: Female
  Weight: 50.34 kg

DRUGS (3)
  1. OXYTROL FOR WOMEN [Suspect]
     Indication: INCONTINENCE
     Dosage: 1 DF, Q4D
     Route: 062
     Dates: end: 201310
  2. VESICARE [Concomitant]
     Indication: INCONTINENCE
     Dosage: UNK, UNKNOWN
  3. VESICARE [Concomitant]
     Indication: POLLAKIURIA

REACTIONS (2)
  - Drug effect decreased [Unknown]
  - Product quality issue [Unknown]
